FAERS Safety Report 9741161 (Version 1)
Quarter: 2013Q4

REPORT INFORMATION
  Report Type: Spontaneous
  Country: US (occurrence: US)
  Receive Date: 20131209
  Receipt Date: 20131209
  Transmission Date: 20140711
  Serious: Yes (Other)
  Sender: FDA-Public Use
  Company Number: US-ELI_LILLY_AND_COMPANY-US201311009310

PATIENT
  Sex: 0

DRUGS (2)
  1. AXIRON [Suspect]
     Indication: HYPOGONADISM
     Dosage: 30 MG, UNKNOWN
     Route: 065
     Dates: start: 2011, end: 201301
  2. AXIRON [Suspect]
     Indication: HYPOGONADISM
     Dosage: 30 MG, UNKNOWN
     Route: 065
     Dates: start: 2011, end: 201301

REACTIONS (2)
  - Abortion spontaneous [Unknown]
  - Exposure via father [Unknown]
